FAERS Safety Report 16431688 (Version 2)
Quarter: 2019Q2

REPORT INFORMATION
  Report Type: Spontaneous
  Country: US (occurrence: US)
  Receive Date: 20190614
  Receipt Date: 20190626
  Transmission Date: 20190711
  Serious: No
  Sender: FDA-Public Use
  Company Number: US-KRAMERLABS-2019-US-007413

PATIENT
  Age: 76 Year
  Sex: Female
  Weight: 59.87 kg

DRUGS (9)
  1. NIZORAL A-D [Suspect]
     Active Substance: KETOCONAZOLE
     Indication: PERSONAL HYGIENE
     Dosage: ONCE WEEKLY
     Route: 061
     Dates: start: 20190402
  2. BIOTIN [Concomitant]
     Active Substance: BIOTIN
  3. VITAMIN D [Concomitant]
     Active Substance: VITAMIN D NOS
  4. CRANBERRY. [Concomitant]
     Active Substance: CRANBERRY
  5. TOPAMAX [Concomitant]
     Active Substance: TOPIRAMATE
  6. LYRICA [Concomitant]
     Active Substance: PREGABALIN
  7. TRAZODONE [Concomitant]
     Active Substance: TRAZODONE HYDROCHLORIDE
  8. VITAMIN C [Concomitant]
     Active Substance: ASCORBIC ACID
  9. TRAMADOL. [Concomitant]
     Active Substance: TRAMADOL

REACTIONS (1)
  - Alopecia [Not Recovered/Not Resolved]

NARRATIVE: CASE EVENT DATE: 20190420
